FAERS Safety Report 13804559 (Version 1)
Quarter: 2017Q3

REPORT INFORMATION
  Report Type: Spontaneous
  Country: DE (occurrence: DE)
  Receive Date: 20170728
  Receipt Date: 20170728
  Transmission Date: 20171127
  Serious: Yes (Hospitalization)
  Sender: FDA-Public Use
  Company Number: DE-TORRENT-00006725

PATIENT
  Age: 66 Year
  Sex: Female

DRUGS (8)
  1. OXCARBAZEPINE. [Concomitant]
     Active Substance: OXCARBAZEPINE
  2. PANTOPRAZOLE [Concomitant]
     Active Substance: PANTOPRAZOLE
  3. ENOXAPARIN [Concomitant]
     Active Substance: ENOXAPARIN
  4. AMPICILLIN SODIUM/SULBACTAM [Concomitant]
  5. LEVETIRACETAM. [Concomitant]
     Active Substance: LEVETIRACETAM
  6. CLOPIDOGREL [Concomitant]
     Active Substance: CLOPIDOGREL BISULFATE
  7. LAMOTRIGINE. [Suspect]
     Active Substance: LAMOTRIGINE
  8. PRAVASTATIN. [Concomitant]
     Active Substance: PRAVASTATIN

REACTIONS (3)
  - Generalised erythema [Recovered/Resolved]
  - Hypersensitivity [Recovered/Resolved]
  - General physical health deterioration [Recovered/Resolved]

NARRATIVE: CASE EVENT DATE: 20170128
